FAERS Safety Report 8823270 (Version 1)
Quarter: 2012Q4

REPORT INFORMATION
  Report Type: 
  Country: JP (occurrence: JP)
  Receive Date: 20121003
  Receipt Date: 20121003
  Transmission Date: 20130627
  Serious: Yes (Life-Threatening, Hospitalization)
  Sender: FDA-Public Use
  Company Number: JP-GLAXOSMITHKLINE-B0833926A

PATIENT
  Age: 46 Year
  Sex: Female

DRUGS (10)
  1. PAXIL [Suspect]
     Indication: DEPRESSION
     Route: 048
  2. PAXIL [Suspect]
     Indication: DEPRESSION
     Dosage: 250MG Per day
     Route: 048
     Dates: start: 20110725, end: 20110725
  3. NORTRIPTYLINE HYDROCHLORIDE [Suspect]
     Route: 048
  4. NORTRIPTYLINE HYDROCHLORIDE [Suspect]
     Dosage: 3750MG Per day
     Route: 048
     Dates: start: 20110725, end: 20110725
  5. MIRTAZAPINE [Suspect]
     Route: 048
  6. MIRTAZAPINE [Suspect]
     Dosage: 50MG Per day
     Route: 048
     Dates: start: 20110725, end: 20110725
  7. ESTAZOLAM [Suspect]
     Route: 048
  8. ESTAZOLAM [Suspect]
     Dosage: 375MG Per day
     Route: 048
     Dates: start: 20110725, end: 20110725
  9. BROMAZEPAM [Suspect]
     Route: 048
  10. BROMAZEPAM [Suspect]
     Dosage: 50MG Per day
     Route: 048
     Dates: start: 20110725, end: 20110725

REACTIONS (19)
  - Electrocardiogram QT prolonged [Recovering/Resolving]
  - Convulsion [Recovering/Resolving]
  - Bundle branch block left [Recovering/Resolving]
  - Blood pressure decreased [Recovering/Resolving]
  - Electrocardiogram QRS complex prolonged [Recovering/Resolving]
  - Arrhythmia [Recovering/Resolving]
  - White blood cell count increased [Recovering/Resolving]
  - Electrocardiogram T wave amplitude increased [Recovering/Resolving]
  - Electrocardiogram abnormal [Unknown]
  - Sinus rhythm [Unknown]
  - Coma scale abnormal [Unknown]
  - Drug level increased [Unknown]
  - Drug effect increased [Unknown]
  - Overdose [Unknown]
  - Altered state of consciousness [Recovered/Resolved]
  - Loss of consciousness [Unknown]
  - Disorientation [Unknown]
  - Somnolence [Unknown]
  - Electrocardiogram U-wave abnormality [Unknown]
